FAERS Safety Report 10164975 (Version 1)
Quarter: 2014Q2

REPORT INFORMATION
  Report Type: Spontaneous
  Country: US (occurrence: US)
  Receive Date: 20140510
  Receipt Date: 20140510
  Transmission Date: 20141212
  Serious: No
  Sender: FDA-Public Use
  Company Number: US-BRISTOL-MYERS SQUIBB COMPANY-19648039

PATIENT
  Age: 58 Year
  Sex: Male

DRUGS (2)
  1. BYDUREON  2MG SUSPENSION [Suspect]
     Route: 058
  2. METFORMIN HCL [Suspect]

REACTIONS (5)
  - Diarrhoea [Unknown]
  - Chest discomfort [Unknown]
  - Blood glucose increased [Unknown]
  - Increased appetite [Unknown]
  - Vomiting [Unknown]
